FAERS Safety Report 20742991 (Version 2)
Quarter: 2022Q2

REPORT INFORMATION
  Report Type: Report from Study
  Country: GB (occurrence: GB)
  Receive Date: 20220425
  Receipt Date: 20220613
  Transmission Date: 20220721
  Serious: Yes (Hospitalization, Other)
  Sender: FDA-Public Use
  Company Number: GB-TAKEDA-2021TUS077461

PATIENT
  Sex: Male

DRUGS (4)
  1. REVLIMID [Suspect]
     Active Substance: LENALIDOMIDE
     Indication: Product used for unknown indication
     Dosage: UNK; ;
     Route: 065
  2. REVLIMID [Suspect]
     Active Substance: LENALIDOMIDE
     Dosage: FREQUENCY TEXT: NOT PROVIDED
     Route: 065
  3. DEXAMETHASONE [Suspect]
     Active Substance: DEXAMETHASONE
     Indication: Product used for unknown indication
     Dosage: FREQUENCY TEXT: NOT PROVIDED
     Route: 065
  4. NINLARO [Suspect]
     Active Substance: IXAZOMIB CITRATE
     Indication: Plasma cell myeloma
     Dosage: 4 MILLIGRAM;
     Route: 048
     Dates: start: 20211130, end: 20220402

REACTIONS (35)
  - Angina pectoris [Unknown]
  - Acute kidney injury [Unknown]
  - Sepsis [Unknown]
  - Confusional state [Unknown]
  - Depression [Unknown]
  - Dysphagia [Unknown]
  - Productive cough [Unknown]
  - Sleep disorder [Recovered/Resolved]
  - Weight decreased [Unknown]
  - Haemoglobin decreased [Unknown]
  - Dyspepsia [Unknown]
  - Dizziness [Unknown]
  - Urinary tract infection [Unknown]
  - Dyspnoea exertional [Recovered/Resolved]
  - Muscle spasms [Unknown]
  - Nocturia [Unknown]
  - Weight increased [Unknown]
  - Decreased appetite [Unknown]
  - Coccydynia [Unknown]
  - Rhinorrhoea [Unknown]
  - Fatigue [Unknown]
  - Back pain [Recovered/Resolved]
  - Platelet count decreased [Unknown]
  - Diarrhoea [Recovered/Resolved]
  - Aphonia [Unknown]
  - Mouth ulceration [Recovering/Resolving]
  - Abdominal pain upper [Unknown]
  - Headache [Unknown]
  - Peripheral swelling [Unknown]
  - Epistaxis [Unknown]
  - COVID-19 [Recovered/Resolved]
  - Pollakiuria [Unknown]
  - Muscle spasms [Recovered/Resolved]
  - Muscle spasms [Recovered/Resolved]
  - Mobility decreased [Recovering/Resolving]

NARRATIVE: CASE EVENT DATE: 20211130
